FAERS Safety Report 24681343 (Version 3)
Quarter: 2025Q3

REPORT INFORMATION
  Report Type: Report from Study
  Country: US (occurrence: US)
  Receive Date: 20241129
  Receipt Date: 20250803
  Transmission Date: 20251020
  Serious: Yes (Other)
  Sender: ALEXION PHARMACEUTICALS
  Company Number: US-AstraZeneca-CH-00756399A

PATIENT
  Sex: Male

DRUGS (1)
  1. ULTOMIRIS [Suspect]
     Active Substance: RAVULIZUMAB-CWVZ
     Indication: Myasthenia gravis
     Route: 065

REACTIONS (6)
  - Choking [Unknown]
  - Chills [Unknown]
  - Fatigue [Unknown]
  - Dyspepsia [Recovering/Resolving]
  - Dyspnoea exertional [Not Recovered/Not Resolved]
  - Retching [Unknown]
